FAERS Safety Report 13726579 (Version 1)
Quarter: 2017Q3

REPORT INFORMATION
  Report Type: Spontaneous
  Country: PE (occurrence: PE)
  Receive Date: 20170706
  Receipt Date: 20170706
  Transmission Date: 20171127
  Serious: Yes (Other)
  Sender: FDA-Public Use
  Company Number: PE-SA-2017SA119050

PATIENT
  Age: 48 Year
  Sex: Male
  Weight: 54 kg

DRUGS (1)
  1. FABRAZYME [Suspect]
     Active Substance: AGALSIDASE BETA
     Indication: FABRY^S DISEASE
     Dosage: DOS: 2 VIALS
     Route: 041
     Dates: start: 20101201, end: 20170420

REACTIONS (8)
  - Headache [Unknown]
  - Atrial fibrillation [Unknown]
  - End stage renal disease [Unknown]
  - Aneurysm [Unknown]
  - Palpitations [Unknown]
  - Dizziness [Unknown]
  - Angina unstable [Unknown]
  - Sinusitis [Unknown]

NARRATIVE: CASE EVENT DATE: 2012
